FAERS Safety Report 14425346 (Version 4)
Quarter: 2018Q4

REPORT INFORMATION
  Report Type: Spontaneous
  Country: US (occurrence: US)
  Receive Date: 20180123
  Receipt Date: 20181128
  Transmission Date: 20190204
  Serious: Yes (Other)
  Sender: FDA-Public Use
  Company Number: US-TEVA-391680USA

PATIENT
  Age: 49 Year
  Sex: Male

DRUGS (1)
  1. MINOCYCLINE [Suspect]
     Active Substance: MINOCYCLINE\MINOCYCLINE HYDROCHLORIDE
     Indication: ACNE
     Dosage: 200 MILLIGRAM DAILY;
     Route: 065

REACTIONS (3)
  - Chondropathy [Recovered/Resolved]
  - Bone hyperpigmentation [Recovered/Resolved]
  - Arthralgia [Recovered/Resolved]
